FAERS Safety Report 17192705 (Version 2)
Quarter: 2020Q1

REPORT INFORMATION
  Report Type: Spontaneous
  Country: US (occurrence: US)
  Receive Date: 20191223
  Receipt Date: 20200228
  Transmission Date: 20200409
  Serious: Yes (Other)
  Sender: FDA-Public Use
  Company Number: US-SA-2019SA350989

PATIENT
  Age: 63 Year
  Sex: Female
  Weight: 77 kg

DRUGS (7)
  1. PARAPLATIN [Concomitant]
     Active Substance: CARBOPLATIN
     Indication: BREAST CANCER FEMALE
  2. TAXOTERE [Suspect]
     Active Substance: DOCETAXEL
     Dosage: 75 UNK, Q3W
     Route: 042
     Dates: start: 20081229, end: 20081229
  3. TAXOTERE [Suspect]
     Active Substance: DOCETAXEL
     Indication: BREAST CANCER FEMALE
     Dosage: 75 UNK, Q3W
     Route: 042
     Dates: start: 20080826, end: 20080826
  4. PARAPLATIN [Concomitant]
     Active Substance: CARBOPLATIN
     Dosage: UNK
     Dates: start: 20080826, end: 20081229
  5. LISINOPRIL. [Concomitant]
     Active Substance: LISINOPRIL
     Dosage: UNK
     Dates: start: 20080708, end: 20130729
  6. HERCEPTIN [Concomitant]
     Active Substance: TRASTUZUMAB
     Indication: BREAST CANCER FEMALE
     Dosage: UNK
     Dates: start: 20080826, end: 20081229
  7. FELODIPINE. [Concomitant]
     Active Substance: FELODIPINE

REACTIONS (2)
  - Psychological trauma [Unknown]
  - Alopecia [Recovering/Resolving]

NARRATIVE: CASE EVENT DATE: 200808
